FAERS Safety Report 6884780-1 (Version None)
Quarter: 2010Q3

REPORT INFORMATION
  Report Type: 
  Country: None (occurrence: None)
  Receive Date: 20100729
  Receipt Date: 20070815
  Transmission Date: 20110219
  Serious: No
  Sender: FDA-Public Use
  Company Number: US-PFIZER INC-2007067689

PATIENT
  Sex: Female
  Weight: 100 kg

DRUGS (3)
  1. CELEBREX [Suspect]
     Indication: FIBROMYALGIA
     Dates: start: 20070814
  2. ALL OTHER THERAPEUTIC PRODUCTS [Concomitant]
  3. RANITIDINE [Concomitant]
     Indication: GASTRIC DISORDER

REACTIONS (1)
  - HEADACHE [None]
